FAERS Safety Report 8444559-6 (Version None)
Quarter: 2012Q2

REPORT INFORMATION
  Report Type: 
  Country: None (occurrence: None)
  Receive Date: 20120618
  Receipt Date: 20120521
  Transmission Date: 20120825
  Serious: Yes (Hospitalization)
  Sender: FDA-Public Use
  Company Number: US-BAYER-2012-038139

PATIENT
  Age: 39 Year
  Sex: Female

DRUGS (9)
  1. ACIPHEX [Concomitant]
  2. ASPIRIN [Concomitant]
     Dosage: UNK UNK, QD
  3. YASMIN [Suspect]
     Dosage: UNK
     Dates: start: 20090601, end: 20090908
  4. PRISTIQ [Concomitant]
     Dosage: 50 MG, DAILY
  5. DROSPIRENONE AND ETHINYL ESTRADIOL [Suspect]
     Dosage: UNK
     Dates: start: 20090601, end: 20090908
  6. ACIPHEX [Concomitant]
     Dosage: 20 MG, DAILY
  7. BENICAR [Concomitant]
     Dosage: 20/12.5 MG, DAILY
  8. YAZ [Suspect]
     Dosage: UNK
     Dates: start: 20090601, end: 20090908
  9. PHENDIMETRAZINE FUMARATE [Concomitant]

REACTIONS (8)
  - NERVOUSNESS [None]
  - PULMONARY EMBOLISM [None]
  - DEPRESSION [None]
  - EMOTIONAL DISTRESS [None]
  - INJURY [None]
  - PAIN [None]
  - DEEP VEIN THROMBOSIS [None]
  - FEAR OF DEATH [None]
